FAERS Safety Report 7110287-2 (Version None)
Quarter: 2010Q4

REPORT INFORMATION
  Report Type: 
  Country: None (occurrence: None)
  Receive Date: 20101117
  Receipt Date: 20101117
  Transmission Date: 20110411
  Serious: No
  Sender: FDA-Public Use
  Company Number: None

PATIENT
  Age: 78 Year
  Sex: Female
  Weight: 52.1637 kg

DRUGS (2)
  1. SULFAMETHOXAZOLE TRIMETHOPRIM [Suspect]
     Indication: URINARY TRACT INFECTION
     Dosage: 1 TAB BID PO 10/24/10 - 2 TAB 10/25/10 - 1 TAB
     Route: 048
     Dates: start: 20101024
  2. SULFAMETHOXAZOLE TRIMETHOPRIM [Suspect]
     Indication: URINARY TRACT INFECTION
     Dosage: 1 TAB BID PO 10/24/10 - 2 TAB 10/25/10 - 1 TAB
     Route: 048
     Dates: start: 20101025

REACTIONS (6)
  - DEHYDRATION [None]
  - DRUG HYPERSENSITIVITY [None]
  - DYSSTASIA [None]
  - FAECAL INCONTINENCE [None]
  - REFUSAL OF TREATMENT BY PATIENT [None]
  - URINARY INCONTINENCE [None]
